FAERS Safety Report 16616065 (Version 1)
Quarter: 2019Q3

REPORT INFORMATION
  Report Type: Spontaneous
  Country: ZA (occurrence: ZA)
  Receive Date: 20190723
  Receipt Date: 20190723
  Transmission Date: 20191004
  Serious: Yes (Hospitalization, Other)
  Sender: FDA-Public Use
  Company Number: ZA-ZYDUS-038776

PATIENT
  Age: 14 Year
  Sex: Female

DRUGS (1)
  1. METFORMIN [Suspect]
     Active Substance: METFORMIN HYDROCHLORIDE
     Indication: PRODUCT USED FOR UNKNOWN INDICATION
     Route: 048

REACTIONS (18)
  - Hypotension [Recovering/Resolving]
  - Respiratory acidosis [Recovering/Resolving]
  - Toxicity to various agents [Unknown]
  - Hyperkalaemia [Recovering/Resolving]
  - Acute kidney injury [Recovering/Resolving]
  - Abdominal tenderness [Recovering/Resolving]
  - Sinus tachycardia [Recovering/Resolving]
  - Renal impairment [Recovered/Resolved]
  - Metabolic acidosis [Recovering/Resolving]
  - Hyponatraemia [Recovering/Resolving]
  - Hepatic enzyme increased [Recovering/Resolving]
  - Electrocardiogram T wave peaked [Recovering/Resolving]
  - Intentional overdose [Unknown]
  - Lactic acidosis [Recovered/Resolved]
  - Somnolence [Recovering/Resolving]
  - Suicide attempt [Unknown]
  - Leukocytosis [Recovering/Resolving]
  - Hypoglycaemia [Recovering/Resolving]
